FAERS Safety Report 10867502 (Version 3)
Quarter: 2015Q1

REPORT INFORMATION
  Report Type: Spontaneous
  Country: IT (occurrence: IT)
  Receive Date: 20150225
  Receipt Date: 20150320
  Transmission Date: 20150721
  Serious: Yes (Death, Hospitalization)
  Sender: FDA-Public Use
  Company Number: IT-SA-2015SA019982

PATIENT
  Age: 69 Year
  Sex: Female
  Weight: 110 kg

DRUGS (14)
  1. NEORECORMON [Concomitant]
     Active Substance: ERYTHROPOIETIN
     Dosage: 2 ADMINISTRATION  WEEKLY
  2. CLEXANE [Suspect]
     Active Substance: ENOXAPARIN SODIUM
     Indication: ATRIAL FIBRILLATION
     Dosage: ROUTE IS MENTIONED AS DIALYSIS
     Route: 065
     Dates: start: 20150130, end: 20150213
  3. CLEXANE [Suspect]
     Active Substance: ENOXAPARIN SODIUM
     Indication: ATRIAL FIBRILLATION
     Route: 065
     Dates: start: 20150130, end: 20150213
  4. LANTUS [Concomitant]
     Active Substance: INSULIN GLARGINE
  5. FERLIXIT [Concomitant]
     Active Substance: SODIUM FERRIC GLUCONATE COMPLEX
     Dosage: FORM: VIAL
  6. MEROPENEM. [Concomitant]
     Active Substance: MEROPENEM
  7. SIVASTIN [Concomitant]
     Active Substance: SIMVASTATIN
  8. CONGESCOR [Concomitant]
     Active Substance: BISOPROLOL
  9. GABAPENTIN. [Concomitant]
     Active Substance: GABAPENTIN
  10. CLEXANE [Suspect]
     Active Substance: ENOXAPARIN SODIUM
     Indication: ANTICOAGULANT THERAPY
     Route: 065
     Dates: start: 20150130, end: 20150213
  11. MEPRAL [Concomitant]
     Active Substance: OMEPRAZOLE SODIUM
  12. NORVASC [Concomitant]
     Active Substance: AMLODIPINE BESYLATE
  13. CLEXANE [Suspect]
     Active Substance: ENOXAPARIN SODIUM
     Indication: ANTICOAGULANT THERAPY
     Dosage: ROUTE IS MENTIONED AS DIALYSIS
     Route: 065
     Dates: start: 20150130, end: 20150213
  14. HUMALOG [Concomitant]
     Active Substance: INSULIN LISPRO

REACTIONS (6)
  - Haemorrhage subcutaneous [Fatal]
  - Hypotension [Fatal]
  - Shock [Fatal]
  - Haemorrhage [Unknown]
  - Haematoma [Fatal]
  - Soft tissue haemorrhage [Unknown]
